FAERS Safety Report 18919214 (Version 1)
Quarter: 2021Q1

REPORT INFORMATION
  Report Type: Spontaneous
  Country: JP (occurrence: JP)
  Receive Date: 20210220
  Receipt Date: 20210220
  Transmission Date: 20210420
  Serious: Yes (Other)
  Sender: FDA-Public Use
  Company Number: JP-UCBSA-2021006717

PATIENT

DRUGS (1)
  1. VIMPAT [Suspect]
     Active Substance: LACOSAMIDE
     Indication: EPILEPSY
     Dosage: UNK
     Route: 048

REACTIONS (11)
  - Somnolence [Unknown]
  - Pancytopenia [Unknown]
  - Hepatic function abnormal [Unknown]
  - Agitation [Unknown]
  - Diarrhoea [Unknown]
  - Secretion discharge [Unknown]
  - Irritability [Unknown]
  - Dizziness [Unknown]
  - Vomiting [Unknown]
  - Epilepsy [Unknown]
  - Rash [Unknown]
